FAERS Safety Report 6739599-9 (Version None)
Quarter: 2010Q2

REPORT INFORMATION
  Report Type: 
  Country: None (occurrence: None)
  Receive Date: 20100525
  Receipt Date: 20100415
  Transmission Date: 20101027
  Serious: Yes (Hospitalization)
  Sender: FDA-Public Use
  Company Number: DK-ROCHE-677399

PATIENT
  Sex: Female
  Weight: 74 kg

DRUGS (7)
  1. BEVACIZUMAB [Suspect]
     Dosage: FREQ. PER PROTOCOL
     Route: 042
     Dates: start: 20090223, end: 20091217
  2. CARBOPLATIN [Suspect]
     Dosage: ACTUAL DOSE GIVEN AT MOST RECENT ADMINISTRATION: 610 AND DATE : 04 MAY 2009, FREQ. PER PROTOCOL.
     Route: 042
     Dates: start: 20090112
  3. PACLITAXEL [Suspect]
     Dosage: DOSE GIVEN AT MOST RECENT ADMINISTRATION: 318 ON 04 MAY 2009 FORM: INFUSION, FREQ. PER PROTOCOL
     Route: 042
     Dates: start: 20090112
  4. ZOPICLON [Concomitant]
     Route: 048
  5. METOPROLOL [Concomitant]
     Route: 048
     Dates: start: 20090504
  6. BENDROFLUMETHIAZIDE [Concomitant]
     Route: 048
     Dates: start: 20090101
  7. MAGNESIUM [Concomitant]
     Route: 048
     Dates: start: 20090101

REACTIONS (2)
  - GALLBLADDER PERFORATION [None]
  - GASTRIC PERFORATION [None]
